FAERS Safety Report 7234321-4 (Version None)
Quarter: 2011Q1

REPORT INFORMATION
  Report Type: 
  Country: None (occurrence: None)
  Receive Date: 20110119
  Receipt Date: 20110106
  Transmission Date: 20110831
  Serious: Yes (Other)
  Sender: FDA-Public Use
  Company Number: US-PFIZER INC-2011005817

PATIENT
  Age: 68 Year
  Sex: Male
  Weight: 81.633 kg

DRUGS (18)
  1. VITAMIN D [Concomitant]
  2. CARVEDILOL [Concomitant]
  3. FLAXSEED OIL [Concomitant]
  4. CYMBALTA [Concomitant]
  5. PRILOSEC [Concomitant]
  6. SPIRONOLACTONE [Concomitant]
  7. CINNAMON [Concomitant]
  8. METFORMIN [Concomitant]
  9. PROPAFENONE [Concomitant]
  10. RAMIPRIL [Concomitant]
  11. ACETYLSALICYLIC ACID [Concomitant]
  12. SIMVASTATIN [Concomitant]
  13. FUROSEMIDE [Concomitant]
  14. CENTRUM SILVER [Concomitant]
  15. ROBITUSSIN COUGH AND CHEST CONGESTION DM MAX [Suspect]
     Dosage: 1 FULL DOSAGE CUP ONCE
     Route: 048
     Dates: start: 20110103, end: 20110103
  16. WARFARIN [Concomitant]
  17. OXCARBAZEPINE [Concomitant]
  18. SYNTHROID [Concomitant]

REACTIONS (5)
  - DYSURIA [None]
  - SOMNOLENCE [None]
  - DIZZINESS [None]
  - BLOOD PRESSURE INCREASED [None]
  - INCORRECT DOSE ADMINISTERED [None]
